FAERS Safety Report 21683886 (Version 1)
Quarter: 2022Q4

REPORT INFORMATION
  Report Type: Spontaneous
  Country: US (occurrence: None)
  Receive Date: 20221204
  Receipt Date: 20221204
  Transmission Date: 20230113
  Serious: No
  Sender: FDA-Public Use
  Company Number: None

PATIENT
  Age: 31 Year
  Sex: Female
  Weight: 72 kg

DRUGS (7)
  1. MAVYRET [Suspect]
     Active Substance: GLECAPREVIR\PIBRENTASVIR
     Indication: Hepatitis C
     Dosage: OTHER QUANTITY : 3 TABLET(S);?FREQUENCY : DAILY;?
     Route: 048
     Dates: start: 20221110
  2. LAMICTYL [Concomitant]
  3. GEODEN [Concomitant]
  4. INVEGA [Concomitant]
     Active Substance: PALIPERIDONE
  5. SYNTHROID [Concomitant]
     Active Substance: LEVOTHYROXINE SODIUM
  6. MIINIPRESS [Concomitant]
  7. BUSPAR [Concomitant]
     Active Substance: BUSPIRONE HYDROCHLORIDE

REACTIONS (2)
  - Nausea [None]
  - Fatigue [None]

NARRATIVE: CASE EVENT DATE: 20221118
